FAERS Safety Report 9219020 (Version 1)
Quarter: 2013Q2

REPORT INFORMATION
  Report Type: Spontaneous
  Country: US (occurrence: US)
  Receive Date: 20130409
  Receipt Date: 20130409
  Transmission Date: 20140414
  Serious: Yes (Other)
  Sender: FDA-Public Use
  Company Number: US-NAPPMUNDI-USA-2013-0100675

PATIENT
  Sex: Female

DRUGS (1)
  1. OXYCONTIN (NDA 22-272) [Suspect]
     Indication: PRODUCT USED FOR UNKNOWN INDICATION
     Dosage: UP TO 40 MG
     Route: 048

REACTIONS (5)
  - Hernia [Unknown]
  - Ulcer [Unknown]
  - Abdominal discomfort [Unknown]
  - Constipation [Unknown]
  - Drug ineffective [Unknown]
